FAERS Safety Report 4331508-5 (Version None)
Quarter: 2004Q1

REPORT INFORMATION
  Report Type: 
  Country: None (occurrence: None)
  Receive Date: 20040329
  Receipt Date: 20040316
  Transmission Date: 20041129
  Serious: Yes (Other)
  Sender: FDA-Public Use
  Company Number: 2004-01112

PATIENT
  Age: 51 Year
  Sex: Female

DRUGS (6)
  1. DEXAMETHASONE [Suspect]
     Indication: CHEMOTHERAPY
     Dosage: 4 MG, 1/WEEK
  2. TAXOL [Suspect]
     Indication: CHEMOTHERAPY
     Dosage: 330 MG, 1/WEEK
  3. ANASTROZOLE(ANASTROZOLE) [Suspect]
     Dosage: 1 MG, 1/WEEK,
  4. AREDIA [Suspect]
     Dosage: 90 MG, 1/WEEK
  5. DIPHENHYDRAMINE HCL [Concomitant]
  6. CIMETIDINE HCL [Concomitant]

REACTIONS (3)
  - FISTULA [None]
  - JAW DISORDER [None]
  - OSTEONECROSIS [None]
